FAERS Safety Report 4998303-5 (Version None)
Quarter: 2006Q2

REPORT INFORMATION
  Report Type: 
  Country: None (occurrence: None)
  Receive Date: 20060508
  Receipt Date: 20060427
  Transmission Date: 20061013
  Serious: Yes (Death, Hospitalization)
  Sender: FDA-Public Use
  Company Number: 163-C5013-06040020

PATIENT
  Age: 70 Year
  Sex: Male

DRUGS (4)
  1. REVLIMID [Suspect]
     Indication: MULTIPLE MYELOMA
     Dosage: 25 MG, QD, ORAL
     Route: 048
     Dates: start: 20060324, end: 20060328
  2. REVLIMID [Suspect]
     Indication: MULTIPLE MYELOMA
     Dosage: 25 MG, QD, ORAL
     Route: 048
     Dates: start: 20060407, end: 20060412
  3. DEXAMETHASONE [Suspect]
     Indication: MULTIPLE MYELOMA
     Dosage: ORAL
     Route: 048
     Dates: start: 20060324
  4. MAGNESIUM (MAGNESIUM) [Concomitant]

REACTIONS (10)
  - ANAEMIA [None]
  - DIALYSIS [None]
  - DISEASE PROGRESSION [None]
  - GENERAL PHYSICAL HEALTH DETERIORATION [None]
  - HYPOTENSION [None]
  - MULTIPLE MYELOMA [None]
  - PLEURAL EFFUSION [None]
  - RENAL DISORDER [None]
  - RENAL FAILURE CHRONIC [None]
  - SKIN ULCER [None]
